FAERS Safety Report 7523600-9 (Version None)
Quarter: 2011Q2

REPORT INFORMATION
  Report Type: 
  Country: None (occurrence: None)
  Receive Date: 20110603
  Receipt Date: 20110603
  Transmission Date: 20111010
  Serious: Yes (Hospitalization, Other)
  Sender: FDA-Public Use
  Company Number: US-US-EMD SERONO, INC.-233185K09USA

PATIENT
  Sex: Female

DRUGS (2)
  1. REBIF [Suspect]
     Indication: MULTIPLE SCLEROSIS
     Route: 058
     Dates: start: 20080514, end: 20080915
  2. REBIF [Suspect]
     Route: 058
     Dates: start: 20090120, end: 20090331

REACTIONS (4)
  - ABDOMINAL HERNIA [None]
  - INTERVERTEBRAL DISC COMPRESSION [None]
  - SPINAL MENINGEAL CYST [None]
  - INJECTION SITE REACTION [None]
